FAERS Safety Report 7679511-1 (Version None)
Quarter: 2011Q3

REPORT INFORMATION
  Report Type: 
  Country: None (occurrence: None)
  Receive Date: 20110812
  Receipt Date: 20110801
  Transmission Date: 20111222
  Serious: Yes (Hospitalization, Other)
  Sender: FDA-Public Use
  Company Number: TR-RANBAXY-2011RR-46645

PATIENT
  Age: 16 Year
  Sex: Female

DRUGS (1)
  1. AMLODIPINE [Suspect]
     Indication: SUICIDAL IDEATION
     Dosage: 500 MG, UNK
     Route: 048

REACTIONS (7)
  - SINUS TACHYCARDIA [None]
  - PULMONARY OEDEMA [None]
  - RESPIRATORY ARREST [None]
  - PYREXIA [None]
  - METABOLIC ACIDOSIS [None]
  - LEUKOCYTOSIS [None]
  - OVERDOSE [None]
